FAERS Safety Report 7805141-4 (Version None)
Quarter: 2011Q4

REPORT INFORMATION
  Report Type: 
  Country: None (occurrence: None)
  Receive Date: 20111010
  Receipt Date: 20110927
  Transmission Date: 20120403
  Serious: Yes (Other)
  Sender: FDA-Public Use
  Company Number: PHHY2011BR86501

PATIENT
  Sex: Female

DRUGS (1)
  1. TEGRETOL-XR [Suspect]
     Dosage: UNK UKN, UNK

REACTIONS (9)
  - FOAMING AT MOUTH [None]
  - MENSTRUAL DISORDER [None]
  - FALL [None]
  - EMOTIONAL DISTRESS [None]
  - BREAST CANCER [None]
  - CONVULSION [None]
  - HEAD INJURY [None]
  - FEELING COLD [None]
  - FACIAL SPASM [None]
